FAERS Safety Report 14217497 (Version 1)
Quarter: 2017Q4

REPORT INFORMATION
  Report Type: Spontaneous
  Country: US (occurrence: US)
  Receive Date: 20171123
  Receipt Date: 20171123
  Transmission Date: 20180321
  Serious: Yes (Other)
  Sender: FDA-Public Use
  Company Number: US-BEH-2017085182

PATIENT
  Sex: Female
  Weight: 88.44 kg

DRUGS (25)
  1. HYDROCODONE BITARTRATE AND ACETAMINOPHEN [Concomitant]
     Active Substance: ACETAMINOPHEN\HYDROCODONE BITARTRATE
  2. DIPHENHYDRAMINE. [Concomitant]
     Active Substance: DIPHENHYDRAMINE
  3. LIDOCAINE/PRILOCAINE [Concomitant]
     Active Substance: LIDOCAINE\PRILOCAINE
  4. EPINEPHRINE. [Concomitant]
     Active Substance: EPINEPHRINE
  5. ORENCIA [Concomitant]
     Active Substance: ABATACEPT
  6. MUPIROCIN. [Concomitant]
     Active Substance: MUPIROCIN
  7. MAGNESIUM [Concomitant]
     Active Substance: MAGNESIUM
  8. HIZENTRA [Suspect]
     Active Substance: HUMAN IMMUNOGLOBULIN G
     Indication: IMMUNODEFICIENCY COMMON VARIABLE
     Dosage: 12 G, UNK
     Route: 058
     Dates: start: 20141219
  9. ACETAMINOPHEN. [Concomitant]
     Active Substance: ACETAMINOPHEN
  10. ROPINIROLE. [Concomitant]
     Active Substance: ROPINIROLE
  11. LANTUS [Concomitant]
     Active Substance: INSULIN GLARGINE
  12. PROZAC [Concomitant]
     Active Substance: FLUOXETINE HYDROCHLORIDE
  13. SUMATRIPTAN SUCCINATE. [Concomitant]
     Active Substance: SUMATRIPTAN SUCCINATE
  14. METFORMIN [Concomitant]
     Active Substance: METFORMIN HYDROCHLORIDE
  15. HIZENTRA [Suspect]
     Active Substance: HUMAN IMMUNOGLOBULIN G
     Indication: RHEUMATOID ARTHRITIS
     Dosage: UNK
     Route: 058
  16. HIZENTRA [Suspect]
     Active Substance: HUMAN IMMUNOGLOBULIN G
     Indication: SELECTIVE IGM IMMUNODEFICIENCY
  17. LISINOPRIL. [Concomitant]
     Active Substance: LISINOPRIL
  18. TOPIRAMATE. [Concomitant]
     Active Substance: TOPIRAMATE
  19. OMEPRAZOLE. [Concomitant]
     Active Substance: OMEPRAZOLE
  20. LIDOCAINE. [Concomitant]
     Active Substance: LIDOCAINE
  21. SINGULAIR [Concomitant]
     Active Substance: MONTELUKAST SODIUM
  22. MELATONIN [Concomitant]
     Active Substance: MELATONIN
  23. PREDNISONE. [Concomitant]
     Active Substance: PREDNISONE
  24. VITAMIN E                          /00110501/ [Concomitant]
     Active Substance: TOCOPHEROL
  25. TRAMADOL. [Concomitant]
     Active Substance: TRAMADOL

REACTIONS (1)
  - Hepatic cirrhosis [Unknown]
